FAERS Safety Report 26013594 (Version 1)
Quarter: 2025Q4

REPORT INFORMATION
  Report Type: Spontaneous
  Country: US (occurrence: US)
  Receive Date: 20251107
  Receipt Date: 20251107
  Transmission Date: 20260118
  Serious: Yes (Hospitalization)
  Sender: JAZZ
  Company Number: US-JAZZ PHARMACEUTICALS-2025-US-005291

PATIENT
  Age: 10 Year
  Sex: Male
  Weight: 70 kg

DRUGS (1)
  1. RYLAZE [Suspect]
     Active Substance: ASPARAGINASE ERWINIA CHRYSANTHEMI (RECOMBINANT)-RYWN
     Indication: Acute lymphocytic leukaemia
     Dosage: 25 MG/M2 ON MONDAYS AND WEDNESDAYS AND 50 MG/M2 ON FRIDAYS

REACTIONS (1)
  - Hypersensitivity [Unknown]
